FAERS Safety Report 26167745 (Version 2)
Quarter: 2025Q4

REPORT INFORMATION
  Report Type: Spontaneous
  Country: EU (occurrence: EU)
  Receive Date: 20251217
  Receipt Date: 20251226
  Transmission Date: 20260117
  Serious: Yes (Other)
  Sender: AUROBINDO
  Company Number: EU-MYLANLABS-2025M1101020

PATIENT
  Age: 73 Year

DRUGS (13)
  1. AMOXICILLIN\CLAVULANIC ACID [Suspect]
     Active Substance: AMOXICILLIN\CLAVULANIC ACID
     Indication: Evidence based treatment
     Dosage: UNK
     Route: 065
     Dates: start: 20240930, end: 20241004
  2. AMOXICILLIN\CLAVULANIC ACID [Suspect]
     Active Substance: AMOXICILLIN\CLAVULANIC ACID
     Indication: Pyrexia
  3. AMOXICILLIN\CLAVULANIC ACID [Suspect]
     Active Substance: AMOXICILLIN\CLAVULANIC ACID
     Indication: Leukocytosis
  4. AMOXICILLIN\CLAVULANIC ACID [Suspect]
     Active Substance: AMOXICILLIN\CLAVULANIC ACID
     Indication: Inflammation
  5. FLUCONAZOLE [Suspect]
     Active Substance: FLUCONAZOLE
     Indication: Pyrexia
     Dosage: 600 MILLIGRAM, ONCE A DAY
     Route: 065
     Dates: start: 20241004
  6. FLUCONAZOLE [Suspect]
     Active Substance: FLUCONAZOLE
     Indication: Leukocytosis
  7. FLUCONAZOLE [Suspect]
     Active Substance: FLUCONAZOLE
     Indication: Inflammation
  8. PIPERACILLIN SODIUM\TAZOBACTAM SODIUM [Suspect]
     Active Substance: PIPERACILLIN SODIUM\TAZOBACTAM SODIUM
     Indication: Inflammation
     Dosage: 4.5 GRAM, ONCE A DAY
     Dates: start: 20241004
  9. PIPERACILLIN SODIUM\TAZOBACTAM SODIUM [Suspect]
     Active Substance: PIPERACILLIN SODIUM\TAZOBACTAM SODIUM
     Indication: Leukocytosis
  10. PIPERACILLIN SODIUM\TAZOBACTAM SODIUM [Suspect]
     Active Substance: PIPERACILLIN SODIUM\TAZOBACTAM SODIUM
     Indication: Pyrexia
  11. AMIKACIN SULFATE [Suspect]
     Active Substance: AMIKACIN SULFATE
     Indication: Pyrexia
     Dosage: 1 GRAM, ONCE A DAY
     Dates: start: 20241009
  12. AMIKACIN SULFATE [Suspect]
     Active Substance: AMIKACIN SULFATE
     Indication: Leukocytosis
  13. AMIKACIN SULFATE [Suspect]
     Active Substance: AMIKACIN SULFATE
     Indication: Inflammation

REACTIONS (4)
  - Shock haemorrhagic [Recovered/Resolved]
  - Drug ineffective [Unknown]
  - Pleural effusion [Unknown]
  - Therapeutic product effect incomplete [Unknown]

NARRATIVE: CASE EVENT DATE: 20241012
